FAERS Safety Report 7435354-5 (Version None)
Quarter: 2011Q2

REPORT INFORMATION
  Report Type: 
  Country: None (occurrence: None)
  Receive Date: 20110425
  Receipt Date: 20110414
  Transmission Date: 20111010
  Serious: Yes (Death)
  Sender: FDA-Public Use
  Company Number: B0698426A

PATIENT
  Sex: Male
  Weight: 72 kg

DRUGS (15)
  1. CYCLOSPORINE [Concomitant]
     Indication: IMMUNOSUPPRESSION
     Dosage: 190MG PER DAY
     Route: 065
     Dates: start: 20100823, end: 20100920
  2. MAXIPIME [Concomitant]
     Dosage: 2G PER DAY
     Route: 042
     Dates: start: 20100828, end: 20100917
  3. MEROPENEM [Concomitant]
     Dosage: 1G PER DAY
     Route: 042
     Dates: start: 20100918, end: 20100920
  4. FLUDARABINE PHOSPHATE [Concomitant]
     Indication: ALLOGENIC BONE MARROW TRANSPLANTATION THERAPY
     Dosage: 42MG PER DAY
     Route: 042
     Dates: start: 20100817, end: 20100821
  5. METHOTREXATE [Concomitant]
     Indication: IMMUNOSUPPRESSION
     Dosage: 9MG PER DAY
     Route: 065
     Dates: start: 20100825, end: 20100904
  6. GRAN [Concomitant]
     Dates: start: 20100905, end: 20100920
  7. PRODIF [Concomitant]
     Dosage: 100MG PER DAY
     Route: 042
     Dates: start: 20100829, end: 20100915
  8. VICCLOX [Concomitant]
     Dosage: 250MG PER DAY
     Route: 042
     Dates: start: 20100830, end: 20100920
  9. ZOVIRAX [Concomitant]
     Dosage: 1000MG PER DAY
     Route: 048
     Dates: start: 20100818, end: 20100828
  10. FUNGUARD [Concomitant]
     Dosage: 150MG PER DAY
     Route: 042
     Dates: start: 20100916, end: 20100919
  11. AMBISOME [Concomitant]
     Dosage: 350MG PER DAY
     Route: 042
     Dates: start: 20100919, end: 20100920
  12. DIFLUCAN [Concomitant]
     Dosage: 200MG PER DAY
     Route: 048
     Dates: start: 20100724, end: 20100828
  13. ALKERAN [Suspect]
     Indication: ALLOGENIC BONE MARROW TRANSPLANTATION THERAPY
     Dosage: 140MGM2 PER DAY
     Route: 042
     Dates: start: 20100822, end: 20100822
  14. TARGOCID [Concomitant]
     Dosage: 400MG TWICE PER DAY
     Route: 042
     Dates: start: 20100830, end: 20100920
  15. CRAVIT [Concomitant]
     Dosage: 500MG PER DAY
     Route: 048
     Dates: start: 20100724, end: 20100828

REACTIONS (3)
  - HEPATIC FUNCTION ABNORMAL [None]
  - RENAL FAILURE [None]
  - CARDIAC FAILURE [None]
